FAERS Safety Report 11168219 (Version 2)
Quarter: 2015Q3

REPORT INFORMATION
  Report Type: Spontaneous
  Country: US (occurrence: US)
  Receive Date: 20150605
  Receipt Date: 20150723
  Transmission Date: 20151125
  Serious: Yes (Death, Hospitalization)
  Sender: FDA-Public Use
  Company Number: US-NOVOPROD-451567

PATIENT
  Age: 10 Year
  Sex: Male
  Weight: 46.3 kg

DRUGS (5)
  1. NOVOSEVEN RT [Suspect]
     Active Substance: COAGULATION FACTOR VIIA RECOMBINANT HUMAN
     Indication: HAEMOPHILIA A WITH ANTI FACTOR VIII
     Dosage: UNK
     Route: 042
     Dates: start: 2011
  2. NOVOSEVEN RT [Suspect]
     Active Substance: COAGULATION FACTOR VIIA RECOMBINANT HUMAN
     Dosage: 10000 MCG EVERY 12 HOURS
     Route: 042
     Dates: start: 201505, end: 201505
  3. NOVOSEVEN RT [Suspect]
     Active Substance: COAGULATION FACTOR VIIA RECOMBINANT HUMAN
     Dosage: 4000 MCG EVERY 2 HOURS FOR 72 HOURS
     Route: 042
     Dates: start: 201505, end: 201505
  4. NOVOSEVEN RT [Suspect]
     Active Substance: COAGULATION FACTOR VIIA RECOMBINANT HUMAN
     Dosage: 6000 MCG FOR AN UNSPECIFIED AMOUNT OF DOSES
     Route: 042
     Dates: start: 201505, end: 201505
  5. NOVOSEVEN RT [Suspect]
     Active Substance: COAGULATION FACTOR VIIA RECOMBINANT HUMAN
     Dosage: 4000 MCG (86 MCG/KG), Q2HOURS THROUGHOUT ADMISSION
     Route: 042
     Dates: start: 20150526

REACTIONS (7)
  - Embolic stroke [Fatal]
  - Bacterial sepsis [Fatal]
  - Muscle haemorrhage [Not Recovered/Not Resolved]
  - Septic shock [Fatal]
  - Brain herniation [Fatal]
  - Off label use [Unknown]
  - Device related infection [Fatal]

NARRATIVE: CASE EVENT DATE: 2015
